FAERS Safety Report 9531516 (Version 1)
Quarter: 2013Q3

REPORT INFORMATION
  Report Type: Spontaneous
  Country: US (occurrence: None)
  Receive Date: 20130916
  Receipt Date: 20130916
  Transmission Date: 20140515
  Serious: Yes (Life-Threatening, Hospitalization, Disabling)
  Sender: FDA-Public Use
  Company Number: None

PATIENT
  Age: 52 Year
  Sex: Female
  Weight: 79.38 kg

DRUGS (1)
  1. LAMICTAL [Suspect]
     Indication: ABNORMAL BEHAVIOUR
     Dosage: 1 PILL
     Route: 048
     Dates: start: 20111001, end: 20120120

REACTIONS (3)
  - Linear IgA disease [None]
  - Thermal burn [None]
  - Apparent death [None]
